FAERS Safety Report 22739175 (Version 4)
Quarter: 2023Q4

REPORT INFORMATION
  Report Type: Report from Study
  Country: US (occurrence: US)
  Receive Date: 20230722
  Receipt Date: 20231120
  Transmission Date: 20240110
  Serious: No
  Sender: FDA-Public Use
  Company Number: US-002147023-NVSC2023US161223

PATIENT
  Age: 53 Year
  Sex: Male

DRUGS (2)
  1. ENTRESTO [Suspect]
     Active Substance: SACUBITRIL\VALSARTAN
     Indication: Product used for unknown indication
     Dosage: 1 DOSAGE FORM, BID
     Route: 048
     Dates: start: 202306
  2. SODIUM [Concomitant]
     Active Substance: SODIUM
     Indication: Product used for unknown indication
     Dosage: UNK, QD
     Route: 065

REACTIONS (6)
  - Hypotension [Unknown]
  - Fatigue [Recovered/Resolved]
  - Heart rate increased [Recovered/Resolved]
  - Nasopharyngitis [Unknown]
  - Cough [Unknown]
  - Somnolence [Unknown]

NARRATIVE: CASE EVENT DATE: 20230701
